FAERS Safety Report 14959968 (Version 1)
Quarter: 2018Q2

REPORT INFORMATION
  Report Type: Report from Study
  Country: US (occurrence: US)
  Receive Date: 20180531
  Receipt Date: 20180531
  Transmission Date: 20180711
  Serious: Yes (Hospitalization, Other)
  Sender: FDA-Public Use
  Company Number: US-GILEAD-2018-0340264

PATIENT
  Age: 48 Year
  Sex: Female
  Weight: 54.42 kg

DRUGS (22)
  1. LIDOCAINE. [Concomitant]
     Active Substance: LIDOCAINE
  2. TRIAMCINOLONE [Concomitant]
     Active Substance: TRIAMCINOLONE
  3. DOCUSATE SODIUM. [Concomitant]
     Active Substance: DOCUSATE SODIUM
  4. VANICREAM [Concomitant]
     Active Substance: TITANIUM DIOXIDE\ZINC OXIDE
  5. KETOCONAZOLE. [Concomitant]
     Active Substance: KETOCONAZOLE
  6. BACLOFEN. [Concomitant]
     Active Substance: BACLOFEN
  7. HYDROXYZINE [Concomitant]
     Active Substance: HYDROXYZINE HYDROCHLORIDE
  8. LISINOPRIL. [Concomitant]
     Active Substance: LISINOPRIL
  9. POLYETHYLENE GLYCOL [Concomitant]
     Active Substance: POLYETHYLENE GLYCOLS
  10. DESONIDE. [Concomitant]
     Active Substance: DESONIDE
  11. DOXEPIN [Concomitant]
     Active Substance: DOXEPIN
  12. FLUOCINONIDE. [Concomitant]
     Active Substance: FLUOCINONIDE
  13. NEOSPORIN [Concomitant]
     Active Substance: BACITRACIN ZINC\NEOMYCIN SULFATE\POLYMYXIN B SULFATE
  14. CLOBETASOL [Concomitant]
     Active Substance: CLOBETASOL
  15. SOFOSBUVIR W/VELPATASVIR [Suspect]
     Active Substance: SOFOSBUVIR\VELPATASVIR
     Indication: HEPATITIS C
     Dosage: 1 DF, QD
     Route: 048
     Dates: start: 20170721, end: 20171017
  16. METFORMIN [Concomitant]
     Active Substance: METFORMIN HYDROCHLORIDE
  17. LACTULOSE. [Concomitant]
     Active Substance: LACTULOSE
  18. FERROUS SULFATE. [Concomitant]
     Active Substance: FERROUS SULFATE
  19. NICOTINE POLACRILEX [Concomitant]
     Active Substance: NICOTINE
  20. GLIPIZIDE. [Concomitant]
     Active Substance: GLIPIZIDE
  21. ACETAMINOPHEN. [Concomitant]
     Active Substance: ACETAMINOPHEN
  22. DICLOFENAC [Concomitant]
     Active Substance: DICLOFENAC

REACTIONS (8)
  - Sepsis [Unknown]
  - Soft tissue infection [Unknown]
  - Hyperkalaemia [Recovering/Resolving]
  - Drug dose omission [Unknown]
  - Acute kidney injury [Unknown]
  - Catheter site pain [Unknown]
  - Abdominal pain [Unknown]
  - Metabolic acidosis [Unknown]

NARRATIVE: CASE EVENT DATE: 20170826
